FAERS Safety Report 9500027 (Version 1)
Quarter: 2013Q1

REPORT INFORMATION
  Report Type: Spontaneous
  Country: US (occurrence: None)
  Receive Date: 20130129
  Receipt Date: 20130129
  Transmission Date: 20140127
  Serious: Yes (Other)
  Sender: FDA-Public Use
  Company Number: 1000026414

PATIENT
  Age: 56 Year
  Sex: Female

DRUGS (2)
  1. BYSTOLIC [Suspect]
     Indication: HYPERTENSION
     Dosage: 2.5 MG (2.5 MG, 1 IN 1 D), ORAL
     Route: 048
     Dates: start: 201106, end: 201109
  2. BYSTOLIC [Suspect]
     Indication: HYPERTENSION
     Dosage: 2.5 MG (2.5 MG, 1 IN 1 D)
     Dates: start: 201112

REACTIONS (3)
  - Blood triglycerides increased [None]
  - Abdominal pain upper [None]
  - Diarrhoea [None]
